FAERS Safety Report 9123553 (Version 1)
Quarter: 2013Q1

REPORT INFORMATION
  Report Type: Spontaneous
  Country: CN (occurrence: CN)
  Receive Date: 20130115
  Receipt Date: 20130115
  Transmission Date: 20140127
  Serious: Yes (Other)
  Sender: FDA-Public Use
  Company Number: CN-PFIZER INC-2013005344

PATIENT
  Sex: Female

DRUGS (3)
  1. MEDROL [Suspect]
     Indication: THYROIDITIS SUBACUTE
     Dosage: 4 TABLETS DAILY
  2. MEDROL [Suspect]
     Dosage: 3 TABLETS DAILY
  3. MEDROL [Suspect]
     Dosage: 2 TABLETS DAILY

REACTIONS (3)
  - Major depression [Unknown]
  - Feeling of body temperature change [Unknown]
  - Decreased appetite [Unknown]
